FAERS Safety Report 9405562 (Version 1)
Quarter: 2013Q3

REPORT INFORMATION
  Report Type: Spontaneous
  Country: CN (occurrence: None)
  Receive Date: 20130715
  Receipt Date: 20130715
  Transmission Date: 20140515
  Serious: Yes (Hospitalization)
  Sender: FDA-Public Use
  Company Number: 7222611

PATIENT
  Age: 68 Year
  Sex: Female

DRUGS (3)
  1. EUTHYROX [Suspect]
     Indication: HYPOTHYROIDISM
     Route: 048
     Dates: start: 2007, end: 2007
  2. CONCOR [Suspect]
     Indication: TACHYCARDIA
     Route: 048
     Dates: start: 2007
  3. CONCOR [Suspect]
     Route: 048
     Dates: start: 2007

REACTIONS (3)
  - Hypersensitivity [None]
  - Shock [None]
  - Visual acuity reduced [None]
